FAERS Safety Report 4452089-1 (Version None)
Quarter: 2004Q3

REPORT INFORMATION
  Report Type: 
  Country: None (occurrence: None)
  Receive Date: 20040916
  Receipt Date: 20040903
  Transmission Date: 20050211
  Serious: Yes (Hospitalization)
  Sender: FDA-Public Use
  Company Number: FR-JNJFOC-20040705037

PATIENT
  Age: 32 Year
  Sex: Male
  Weight: 60 kg

DRUGS (3)
  1. INFLIXIMAB [Suspect]
     Indication: ANKYLOSING SPONDYLITIS
     Route: 042
  2. CELECOXIB [Concomitant]
     Indication: ANKYLOSING SPONDYLITIS
     Route: 049
  3. ZYRTEC [Concomitant]
     Route: 049

REACTIONS (1)
  - TONSILLITIS [None]
